FAERS Safety Report 10133763 (Version 3)
Quarter: 2014Q2

REPORT INFORMATION
  Report Type: Spontaneous
  Country: JP (occurrence: JP)
  Receive Date: 20140428
  Receipt Date: 20140505
  Transmission Date: 20141212
  Serious: Yes (Death, Hospitalization)
  Sender: FDA-Public Use
  Company Number: PHHY2013JP146884

PATIENT
  Age: 61 Year
  Sex: Male

DRUGS (2)
  1. AFINITOR [Suspect]
     Indication: METASTATIC RENAL CELL CARCINOMA
     Dosage: 10 MG, DAILY
     Route: 048
     Dates: start: 20131011, end: 20131118
  2. AFINITOR [Suspect]
     Route: 048
     Dates: start: 20131225

REACTIONS (6)
  - General physical health deterioration [Fatal]
  - Malignant neoplasm progression [Fatal]
  - Interstitial lung disease [Recovering/Resolving]
  - Fatigue [Unknown]
  - Malaise [Unknown]
  - Pyrexia [Unknown]
